FAERS Safety Report 7900926-8 (Version None)
Quarter: 2011Q4

REPORT INFORMATION
  Report Type: 
  Country: None (occurrence: None)
  Receive Date: 20111108
  Receipt Date: 20111025
  Transmission Date: 20120403
  Serious: Yes (Other)
  Sender: FDA-Public Use
  Company Number: US-ELI_LILLY_AND_COMPANY-US201110007080

PATIENT
  Sex: Female

DRUGS (3)
  1. ANALGESICS [Concomitant]
  2. ALCOHOL [Concomitant]
  3. CYMBALTA [Suspect]
     Indication: DEPRESSION
     Dosage: 60 MG, UNK
     Dates: start: 20110901

REACTIONS (3)
  - LOSS OF CONSCIOUSNESS [None]
  - ALCOHOL USE [None]
  - AMNESIA [None]
